FAERS Safety Report 4445897-4 (Version None)
Quarter: 2004Q3

REPORT INFORMATION
  Report Type: 
  Country: None (occurrence: None)
  Receive Date: 20040908
  Receipt Date: 20040908
  Transmission Date: 20050211
  Serious: Yes (Hospitalization)
  Sender: FDA-Public Use
  Company Number: None

PATIENT
  Age: 83 Year
  Sex: Male

DRUGS (7)
  1. ISOSORBIDE [Suspect]
     Indication: ANGINA PECTORIS
     Dosage: 10 MG TID
     Dates: start: 20040301
  2. NITROGLYCERIN [Concomitant]
  3. FUROSEMIDE [Concomitant]
  4. TAMSULOSIN [Concomitant]
  5. ASPIRIN [Concomitant]
  6. ZOCOR [Concomitant]
  7. MAC OXIDE [Concomitant]

REACTIONS (2)
  - DIZZINESS [None]
  - HYPOTENSION [None]
